FAERS Safety Report 9086273 (Version 1)
Quarter: 2013Q1

REPORT INFORMATION
  Report Type: Spontaneous
  Country: IN (occurrence: IN)
  Receive Date: 20130131
  Receipt Date: 20130131
  Transmission Date: 20140127
  Serious: Yes (Other)
  Sender: FDA-Public Use
  Company Number: IN-ELI_LILLY_AND_COMPANY-IN201210003582

PATIENT
  Sex: Female

DRUGS (2)
  1. HUMALOG LISPRO [Suspect]
     Indication: GESTATIONAL DIABETES
     Dosage: 3 U, QD
     Route: 058
     Dates: start: 20121009, end: 20121120
  2. HUMALOG LISPRO [Suspect]
     Dosage: 3 U, EACH EVENING
     Dates: start: 20121009, end: 20121120

REACTIONS (1)
  - Exposure during pregnancy [Recovered/Resolved]
